FAERS Safety Report 17742095 (Version 2)
Quarter: 2020Q2

REPORT INFORMATION
  Report Type: Report from Study
  Country: DE (occurrence: DE)
  Receive Date: 20200504
  Receipt Date: 20200521
  Transmission Date: 20200714
  Serious: Yes (Death, Hospitalization, Other)
  Sender: FDA-Public Use
  Company Number: DE-INCYTE CORPORATION-2020IN004115

PATIENT

DRUGS (29)
  1. PREDNISOLONE. [Suspect]
     Active Substance: PREDNISOLONE
     Indication: DYSPNOEA
     Dosage: 50 MG, PER DAY
     Route: 065
     Dates: start: 20171229, end: 20180104
  2. PREDNISOLONE. [Suspect]
     Active Substance: PREDNISOLONE
     Dosage: 10 OT, PER DAY
     Route: 065
     Dates: start: 20180112, end: 20180118
  3. SPIRONOLACTONE. [Concomitant]
     Active Substance: SPIRONOLACTONE
     Indication: HYPERTENSION
     Dosage: 25 MG, QD
     Route: 065
  4. TORASEMIDE [Concomitant]
     Active Substance: TORSEMIDE
     Dosage: 10 MG, QD
     Route: 065
     Dates: end: 20180327
  5. ASPIRIN. [Concomitant]
     Active Substance: ASPIRIN
     Indication: ANTICOAGULANT THERAPY
     Dosage: 100 MG, QD
     Route: 065
     Dates: end: 20190925
  6. TILIDIN [Concomitant]
     Active Substance: NALOXONE HYDROCHLORIDE\TILIDINE HYDROCHLORIDE
     Indication: PAIN
     Dosage: UNK UNK, PRN
     Route: 065
  7. INCB018424 [Suspect]
     Active Substance: RUXOLITINIB
     Dosage: 10 MG, QD
     Route: 048
     Dates: start: 20180912
  8. METFORMIN [Concomitant]
     Active Substance: METFORMIN HYDROCHLORIDE
     Indication: TYPE 2 DIABETES MELLITUS
     Dosage: 1000 MG, QD
     Route: 065
     Dates: start: 20191225
  9. MOXONIDINE [Concomitant]
     Active Substance: MOXONIDINE
     Indication: HYPERTENSION
     Dosage: 0.2 MG, QD
     Route: 065
  10. TORASEMIDE [Concomitant]
     Active Substance: TORSEMIDE
     Indication: HYPERTENSION
     Dosage: 50 MG, QD
     Route: 065
     Dates: end: 20171127
  11. INCB018424 [Suspect]
     Active Substance: RUXOLITINIB
     Indication: MYELOFIBROSIS
     Dosage: 20 MG, QD
     Route: 048
     Dates: start: 20170525
  12. LOSARTAN POTASSIUM. [Concomitant]
     Active Substance: LOSARTAN POTASSIUM
     Indication: HYPERTENSION
     Dosage: 25 OT, QD
     Route: 065
  13. LEVOBETA C [Concomitant]
     Indication: RESTLESS LEGS SYNDROME
     Dosage: 100/25 MG QD
     Route: 065
     Dates: end: 20181116
  14. NEUPRO [Concomitant]
     Active Substance: ROTIGOTINE
     Indication: RESTLESS LEGS SYNDROME
     Dosage: 2 MG, QD
     Route: 065
     Dates: end: 20181116
  15. NEUPRO [Concomitant]
     Active Substance: ROTIGOTINE
     Dosage: 3 MG, QD
     Route: 065
     Dates: start: 20181116
  16. CANDESARTAN. [Concomitant]
     Active Substance: CANDESARTAN
     Indication: HYPERTENSION
     Dosage: 4 OT, QD
     Route: 065
     Dates: start: 201810
  17. INCB018424 [Suspect]
     Active Substance: RUXOLITINIB
     Dosage: 20 MG, QD
     Route: 048
     Dates: start: 20180626
  18. PREDNISOLONE. [Suspect]
     Active Substance: PREDNISOLONE
     Dosage: 20 OT, PER DAY
     Route: 065
     Dates: start: 20191011, end: 20200227
  19. BISOPROLOL [Concomitant]
     Active Substance: BISOPROLOL
     Indication: HYPERTENSION
     Dosage: 5 MG, QD
     Route: 065
  20. NITRENDIPINE [Concomitant]
     Active Substance: NITRENDIPINE
     Indication: HYPERTENSION
     Dosage: 5 MG, QD
     Route: 065
  21. RIVOTRIL [Concomitant]
     Active Substance: CLONAZEPAM
     Indication: RESTLESS LEGS SYNDROME
     Dosage: 5 GTT, QD
     Route: 065
  22. MOGADAN [Concomitant]
     Indication: SLEEP DISORDER
     Dosage: UNK UNK, PRN
     Route: 065
     Dates: end: 20190806
  23. PANTOPRAZOLE [Concomitant]
     Active Substance: PANTOPRAZOLE
     Indication: PROPHYLAXIS
     Dosage: 20 OT, QD
     Route: 065
     Dates: start: 20190801
  24. INCB018424 [Suspect]
     Active Substance: RUXOLITINIB
     Dosage: 30 MG, QD
     Route: 048
     Dates: start: 20171118, end: 20171218
  25. INCB018424 [Suspect]
     Active Substance: RUXOLITINIB
     Dosage: 25 MG, QD
     Route: 048
     Dates: start: 20171219, end: 20180103
  26. PREDNISOLONE. [Suspect]
     Active Substance: PREDNISOLONE
     Dosage: 25 MG, PER DAY
     Route: 065
     Dates: start: 20180105, end: 20180111
  27. PREDNISOLONE. [Suspect]
     Active Substance: PREDNISOLONE
     Dosage: 25 OT, PER DAY
     Route: 065
     Dates: start: 20190801, end: 20191010
  28. RESTEX [Concomitant]
     Active Substance: BENSERAZIDE\LEVODOPA
     Indication: RESTLESS LEGS SYNDROME
     Dosage: 100/25 MG QD
     Route: 065
  29. XARELTO [Concomitant]
     Active Substance: RIVAROXABAN
     Indication: ANTICOAGULANT THERAPY
     Dosage: 30 OT, QD
     Route: 065
     Dates: start: 20190925, end: 20191025

REACTIONS (4)
  - Deep vein thrombosis [Recovered/Resolved]
  - Death [Fatal]
  - Pulmonary embolism [Recovered/Resolved]
  - Deep vein thrombosis [Recovered/Resolved]

NARRATIVE: CASE EVENT DATE: 20190925
